FAERS Safety Report 6474208-8 (Version None)
Quarter: 2009Q4

REPORT INFORMATION
  Report Type: 
  Country: None (occurrence: None)
  Receive Date: 20091204
  Receipt Date: 20091127
  Transmission Date: 20100525
  Serious: Yes (Other)
  Sender: FDA-Public Use
  Company Number: JP-PFIZER INC-2009277359

PATIENT
  Age: 40 Year
  Sex: Female
  Weight: 35 kg

DRUGS (1)
  1. ZITHROMAX [Suspect]
     Indication: POST PROCEDURAL INFECTION
     Dosage: 500 MG, 1X/DAY
     Route: 048
     Dates: start: 20090927, end: 20090929

REACTIONS (2)
  - VISION BLURRED [None]
  - VISUAL ACUITY REDUCED [None]
